FAERS Safety Report 13684621 (Version 1)
Quarter: 2017Q2

REPORT INFORMATION
  Report Type: Spontaneous
  Country: US (occurrence: US)
  Receive Date: 20170623
  Receipt Date: 20170623
  Transmission Date: 20170830
  Serious: No
  Sender: FDA-Public Use
  Company Number: US-ASTELLAS-2017US015820

PATIENT
  Age: 82 Year
  Sex: Female

DRUGS (1)
  1. VESICARE [Suspect]
     Active Substance: SOLIFENACIN SUCCINATE
     Indication: PRODUCT USED FOR UNKNOWN INDICATION
     Route: 065
     Dates: start: 201704

REACTIONS (4)
  - Pruritus [Recovering/Resolving]
  - Blood pressure increased [Unknown]
  - Urticaria [Recovering/Resolving]
  - Dry mouth [Unknown]

NARRATIVE: CASE EVENT DATE: 201704
